FAERS Safety Report 5001270-1 (Version None)
Quarter: 2006Q1

REPORT INFORMATION
  Report Type: 
  Country: None (occurrence: None)
  Receive Date: 20060315
  Receipt Date: 20051206
  Transmission Date: 20060701
  Serious: Yes (Other)
  Sender: FDA-Public Use
  Company Number: 423417

PATIENT
  Age: 77 Year
  Sex: Female
  Weight: 61.7 kg

DRUGS (1)
  1. BONIVA [Suspect]
     Indication: OSTEOPOROSIS
     Dosage: 150 MG 1 PER MONTH ORAL
     Route: 048
     Dates: start: 20050921, end: 20051121

REACTIONS (7)
  - ARTHRALGIA [None]
  - BONE PAIN [None]
  - GASTRITIS [None]
  - NAUSEA [None]
  - OESOPHAGEAL DISCOMFORT [None]
  - PAIN IN EXTREMITY [None]
  - TINNITUS [None]
